FAERS Safety Report 9081586 (Version 1)
Quarter: 2013Q1

REPORT INFORMATION
  Report Type: Spontaneous
  Country: IT (occurrence: IT)
  Receive Date: 20130130
  Receipt Date: 20130130
  Transmission Date: 20140127
  Serious: Yes (Other)
  Sender: FDA-Public Use
  Company Number: PHHY2012IT082213

PATIENT
  Age: 51 Year
  Sex: Female

DRUGS (4)
  1. OLANZAPINE SANDOZ [Suspect]
     Indication: BIPOLAR DISORDER
     Dosage: 5 MG DAILY
     Route: 048
     Dates: start: 20111215, end: 20120315
  2. FLUOXETINE [Concomitant]
     Dosage: 30 MG, UNK
  3. LAMICTAL [Concomitant]
     Dosage: 100 MG, UNK
     Route: 048
  4. EN [Concomitant]
     Dosage: 10 DRP, UNK
     Route: 048

REACTIONS (4)
  - Panic attack [Recovering/Resolving]
  - Dyspnoea [Recovering/Resolving]
  - Muscle rigidity [Recovering/Resolving]
  - Drug ineffective [Recovering/Resolving]
